FAERS Safety Report 18599139 (Version 2)
Quarter: 2021Q1

REPORT INFORMATION
  Report Type: Report from Study
  Country: MX (occurrence: MX)
  Receive Date: 20201210
  Receipt Date: 20210112
  Transmission Date: 20210419
  Serious: Yes (Other)
  Sender: FDA-Public Use
  Company Number: PHHY2019MX143335

PATIENT
  Sex: Male
  Weight: 73 kg

DRUGS (3)
  1. ENTRESTO [Suspect]
     Active Substance: SACUBITRIL\VALSARTAN
     Indication: CARDIAC DISORDER
     Dosage: 1 DF (50 MG), QD
     Route: 048
  2. ENTRESTO [Suspect]
     Active Substance: SACUBITRIL\VALSARTAN
     Dosage: 0.5 DF (100 MG), QD
     Route: 048
     Dates: start: 202008
  3. ENTRESTO [Suspect]
     Active Substance: SACUBITRIL\VALSARTAN
     Dosage: 0.5 DF (50 MG), QD
     Route: 048
     Dates: end: 202008

REACTIONS (9)
  - Angina unstable [Unknown]
  - Productive cough [Unknown]
  - Product use in unapproved indication [Unknown]
  - Vocal cord disorder [Unknown]
  - Wrong technique in product usage process [Unknown]
  - Inappropriate schedule of product administration [Unknown]
  - Oropharyngeal discomfort [Not Recovered/Not Resolved]
  - Prescribed underdose [Unknown]
  - Speech disorder [Unknown]
